FAERS Safety Report 17294111 (Version 1)
Quarter: 2020Q1

REPORT INFORMATION
  Report Type: Spontaneous
  Country: US (occurrence: US)
  Receive Date: 20200120
  Receipt Date: 20200120
  Transmission Date: 20200409
  Serious: Yes (Other)
  Sender: FDA-Public Use
  Company Number: None

PATIENT
  Age: 16 Year
  Sex: Female

DRUGS (3)
  1. ADVAIR HFA [Concomitant]
     Active Substance: FLUTICASONE PROPIONATE\SALMETEROL XINAFOATE
  2. ALMAY SENSITIVE SKIN ANTIPERSPIRANT - DEODORANT ROLL-ON FRAGRANCE FREE [Suspect]
     Active Substance: ALUMINUM SESQUICHLOROHYDRATE
     Indication: PERSONAL HYGIENE
     Route: 061
     Dates: start: 20200120, end: 20200120
  3. VENTALIN [Concomitant]

REACTIONS (2)
  - Blister [None]
  - Rash [None]

NARRATIVE: CASE EVENT DATE: 20200120
